FAERS Safety Report 11174803 (Version 1)
Quarter: 2015Q2

REPORT INFORMATION
  Report Type: Spontaneous
  Country: US (occurrence: US)
  Receive Date: 20150609
  Receipt Date: 20150609
  Transmission Date: 20150821
  Serious: No
  Sender: FDA-Public Use
  Company Number: US-TEVA-568898USA

PATIENT
  Age: 45 Year
  Sex: Female

DRUGS (2)
  1. COPAXONE [Suspect]
     Active Substance: GLATIRAMER ACETATE
     Indication: MULTIPLE SCLEROSIS
     Dosage: 17.1429 MILLIGRAM DAILY;
     Route: 058
     Dates: start: 20150517
  2. AMPYRA [Suspect]
     Active Substance: DALFAMPRIDINE
     Route: 065

REACTIONS (4)
  - Dyspnoea [Unknown]
  - Chest discomfort [Unknown]
  - Tremor [Unknown]
  - Muscle spasms [Unknown]
